FAERS Safety Report 8972467 (Version 1)
Quarter: 2012Q4

REPORT INFORMATION
  Report Type: 
  Country: JP (occurrence: JP)
  Receive Date: 20121219
  Receipt Date: 20121219
  Transmission Date: 20130627
  Serious: Yes (Hospitalization)
  Sender: FDA-Public Use
  Company Number: JP-009507513-2012SP027561

PATIENT
  Age: 68 Year
  Sex: Female
  Weight: 62 kg

DRUGS (7)
  1. PEGINTRON [Suspect]
     Indication: CHRONIC HEPATITIS C
     Dosage: 1.5 Microgram per kilogram, qw
     Route: 058
     Dates: start: 20120502, end: 20120502
  2. REBETOL [Suspect]
     Indication: CHRONIC HEPATITIS C
     Dosage: 200 mg, qd
     Route: 048
     Dates: start: 20120502, end: 20120506
  3. TELAVIC [Suspect]
     Indication: CHRONIC HEPATITIS C
     Dosage: 1500 mg, qd
     Route: 048
     Dates: start: 20120502, end: 20120506
  4. ADALAT CR [Concomitant]
     Indication: HYPERTENSION
     Dosage: 20 mg, bid
     Route: 048
     Dates: start: 20120502, end: 20120507
  5. OLMETEC [Concomitant]
     Indication: HYPERTENSION
     Dosage: 20 mg, qd
     Route: 048
     Dates: start: 20120502, end: 20120507
  6. MOHRUS [Concomitant]
     Indication: MUSCULOSKELETAL STIFFNESS
     Dosage: 7 sheets/as needed
     Route: 061
     Dates: start: 20120503
  7. NAUZELIN [Concomitant]
     Indication: NAUSEA
     Dosage: 10 mg, prn
     Dates: start: 20120506

REACTIONS (1)
  - Renal impairment [Not Recovered/Not Resolved]
